FAERS Safety Report 24098504 (Version 1)
Quarter: 2024Q3

REPORT INFORMATION
  Report Type: Other
  Country: IT (occurrence: IT)
  Receive Date: 20240716
  Receipt Date: 20240716
  Transmission Date: 20241016
  Serious: Yes (Hospitalization)
  Sender: B BRAUN
  Company Number: IT-B.Braun Medical Inc.-2159182

PATIENT
  Age: 13 Year
  Sex: Female

DRUGS (3)
  1. MEROPENEM [Suspect]
     Active Substance: MEROPENEM
     Indication: Antibiotic therapy
  2. DAPTOMYCIN [Suspect]
     Active Substance: DAPTOMYCIN
  3. Granulocyte-Colony Stimulating Factor (G-CSF) [Concomitant]

REACTIONS (1)
  - Drug effect less than expected [Unknown]
